FAERS Safety Report 18768893 (Version 1)
Quarter: 2021Q1

REPORT INFORMATION
  Report Type: Spontaneous
  Country: US (occurrence: US)
  Receive Date: 20210121
  Receipt Date: 20210121
  Transmission Date: 20210419
  Serious: No
  Sender: FDA-Public Use
  Company Number: US-FRESENIUS KABI-FK202100700

PATIENT
  Sex: Female

DRUGS (11)
  1. FLUOROURACIL (MANUFACTURER UNKNOWN) [Suspect]
     Active Substance: FLUOROURACIL
     Dosage: AS PART OF FOLFOX REGIMEN
     Route: 065
  2. CALCIUM FOLINATE [Suspect]
     Active Substance: LEUCOVORIN CALCIUM
     Indication: PRODUCT USED FOR UNKNOWN INDICATION
     Dosage: AS PART OF FOLFIRINOX REGIMEN
     Route: 065
  3. CALCIUM FOLINATE [Suspect]
     Active Substance: LEUCOVORIN CALCIUM
     Dosage: AS PART OF FOLFOX REGIMEN
     Route: 065
  4. OXALIPLATIN. [Suspect]
     Active Substance: OXALIPLATIN
     Dosage: AS PART OF FOLFOX REGIMEN
     Route: 065
  5. FLUOROURACIL (MANUFACTURER UNKNOWN) [Suspect]
     Active Substance: FLUOROURACIL
     Indication: PRODUCT USED FOR UNKNOWN INDICATION
     Dosage: AS PART OF FOLFIRINOX REGIMEN
     Route: 065
  6. FLUOROURACIL (MANUFACTURER UNKNOWN) [Suspect]
     Active Substance: FLUOROURACIL
     Dosage: AS PART OF NALIRIFOX REGIMEN
     Route: 065
  7. IRINOTECAN [Suspect]
     Active Substance: IRINOTECAN
     Indication: PRODUCT USED FOR UNKNOWN INDICATION
     Dosage: AS PART OF FOLFIRINOX REGIMEN
     Route: 065
  8. OXALIPLATIN. [Suspect]
     Active Substance: OXALIPLATIN
     Indication: PRODUCT USED FOR UNKNOWN INDICATION
     Dosage: AS PART OF FOLFIRINOX REGIMEN
     Route: 065
  9. OXALIPLATIN. [Suspect]
     Active Substance: OXALIPLATIN
     Dosage: AS PART OF NALIRIFOX REGIMEN
     Route: 065
  10. CALCIUM FOLINATE [Suspect]
     Active Substance: LEUCOVORIN CALCIUM
     Dosage: AS PART OF NALIRIFOX REGIMEN
     Route: 065
  11. IRINOTECAN [Suspect]
     Active Substance: IRINOTECAN
     Dosage: LIPOSOMAL IRINOTECAN?AS PART OF NALIRIFOX REGIMEN
     Route: 065

REACTIONS (3)
  - Disease progression [Unknown]
  - Off label use [Unknown]
  - Diarrhoea [Unknown]
